FAERS Safety Report 9034479 (Version 1)
Quarter: 2012Q4

REPORT INFORMATION
  Report Type: Spontaneous
  Country: US (occurrence: None)
  Receive Date: 20121219
  Receipt Date: 20121219
  Transmission Date: 20130627
  Serious: Yes (Other)
  Sender: FDA-Public Use
  Company Number: 2012PROUSA02357

PATIENT
  Age: 80 Year
  Sex: Male

DRUGS (2)
  1. PROVENGE (SIPULEUCEL-T) SUSPENSION, 250ML [Suspect]
     Route: 042
     Dates: start: 20121022, end: 20121022
  2. PROVENGE (SIPULEUCEL-T) SUSPENSION, 250ML [Suspect]
     Route: 042
     Dates: start: 20121105, end: 20121105

REACTIONS (2)
  - Thrombosis [None]
  - Asthenia [None]
